FAERS Safety Report 6408224-9 (Version None)
Quarter: 2009Q4

REPORT INFORMATION
  Report Type: 
  Country: None (occurrence: None)
  Receive Date: 20091016
  Receipt Date: 20091013
  Transmission Date: 20100525
  Serious: Yes (Life-Threatening, Other)
  Sender: FDA-Public Use
  Company Number: GXKR2009DE08349

PATIENT
  Age: 71 Year
  Sex: Male
  Weight: 71 kg

DRUGS (4)
  1. CLOZAPINE [Suspect]
     Indication: PSYCHOTIC DISORDER
     Dosage: 100 MG, ORAL
     Route: 048
     Dates: end: 20090710
  2. CLOZAPINE [Suspect]
     Indication: PSYCHOTIC DISORDER
     Dosage: 100 MG, ORAL
     Route: 048
     Dates: start: 20090710
  3. ARTANE [Concomitant]
  4. METAMIZOLE (METAMIZOLE) [Concomitant]

REACTIONS (7)
  - BILIRUBINURIA [None]
  - CONSTIPATION [None]
  - HYPERBILIRUBINAEMIA [None]
  - INTESTINAL OBSTRUCTION [None]
  - LABORATORY TEST ABNORMAL [None]
  - LEUKOPENIA [None]
  - RENAL FAILURE [None]
